FAERS Safety Report 4781039-3 (Version None)
Quarter: 2005Q3

REPORT INFORMATION
  Report Type: 
  Country: None (occurrence: None)
  Receive Date: 20050926
  Receipt Date: 20050926
  Transmission Date: 20060218
  Serious: Yes (Hospitalization, Other)
  Sender: FDA-Public Use
  Company Number: None

PATIENT
  Age: 82 Year
  Sex: Male
  Weight: 65.7 kg

DRUGS (10)
  1. GATIFLOXACIN [Suspect]
     Indication: URINARY TRACT INFECTION
     Dosage: ONCE DAILY
     Dates: start: 20050610, end: 20050612
  2. ATIVAN [Concomitant]
  3. VANCOMYCIN [Concomitant]
  4. ASPIRIN [Concomitant]
  5. FLUNISOLIDE [Concomitant]
  6. HYDROCHLOROTHIAZIDE [Concomitant]
  7. HYDROCODONE [Concomitant]
  8. LOSARTAN POTASSIUM [Concomitant]
  9. PENTOXIFLYLLINE [Concomitant]
  10. OMEPRAZOLE [Concomitant]

REACTIONS (4)
  - CONFUSIONAL STATE [None]
  - DEMENTIA [None]
  - MENTAL STATUS CHANGES [None]
  - PSYCHOTIC DISORDER [None]
